FAERS Safety Report 14349696 (Version 1)
Quarter: 2018Q1

REPORT INFORMATION
  Report Type: Spontaneous
  Country: US (occurrence: US)
  Receive Date: 20180103
  Receipt Date: 20180103
  Transmission Date: 20180509
  Serious: Yes (Hospitalization)
  Sender: FDA-Public Use
  Company Number: None

PATIENT
  Age: 36 Year
  Sex: Female

DRUGS (6)
  1. DAPSONE. [Concomitant]
     Active Substance: DAPSONE
  2. VALACYCLOVIR [Concomitant]
     Active Substance: VALACYCLOVIR HYDROCHLORIDE
  3. FLUCONAZOLE. [Concomitant]
     Active Substance: FLUCONAZOLE
  4. AZITHROMYCIN ANHYDROUS. [Concomitant]
     Active Substance: AZITHROMYCIN ANHYDROUS
  5. GENVOYA [Suspect]
     Active Substance: COBICISTAT\ELVITEGRAVIR\EMTRICITABINE\TENOFOVIR ALAFENAMIDE FUMARATE
     Indication: HIV INFECTION
     Route: 048
  6. OXYBUTININ [Concomitant]
     Active Substance: OXYBUTYNIN

REACTIONS (6)
  - Swelling [None]
  - Vertigo [None]
  - Dizziness [None]
  - Unresponsive to stimuli [None]
  - Drug dose omission [None]
  - Incorrect dose administered [None]

NARRATIVE: CASE EVENT DATE: 20180101
